FAERS Safety Report 10172015 (Version 1)
Quarter: 2014Q2

REPORT INFORMATION
  Report Type: Spontaneous
  Country: US (occurrence: US)
  Receive Date: 20140515
  Receipt Date: 20140515
  Transmission Date: 20141212
  Serious: No
  Sender: FDA-Public Use
  Company Number: US-PFIZER INC-2014131395

PATIENT
  Age: 53 Year
  Sex: Female
  Weight: 45.4 kg

DRUGS (3)
  1. GABAPENTIN [Suspect]
     Indication: ANEURYSM
     Dosage: 600 MG, 3X/DAY
     Dates: start: 20140406
  2. GABAPENTIN [Suspect]
     Indication: PERONEAL NERVE INJURY
  3. OXYCONTIN [Concomitant]
     Dosage: 40 MG, 3X/DAY

REACTIONS (1)
  - Drug ineffective [Unknown]
